FAERS Safety Report 25853612 (Version 1)
Quarter: 2025Q3

REPORT INFORMATION
  Report Type: Spontaneous
  Country: US (occurrence: US)
  Receive Date: 20250926
  Receipt Date: 20250926
  Transmission Date: 20251021
  Serious: Yes (Other)
  Sender: AMGEN
  Company Number: US-AMGEN-USASP2025162341

PATIENT

DRUGS (1)
  1. DICLOFENAC SODIUM [Suspect]
     Active Substance: DICLOFENAC SODIUM
     Indication: Prophylaxis
     Dosage: 75 MILLIGRAM, BID
     Route: 065

REACTIONS (5)
  - Extraskeletal ossification [Unknown]
  - Joint range of motion decreased [Unknown]
  - Arthralgia [Unknown]
  - Joint impingement [Unknown]
  - Off label use [Unknown]
